FAERS Safety Report 5809455-9 (Version None)
Quarter: 2008Q3

REPORT INFORMATION
  Report Type: 
  Country: None (occurrence: None)
  Receive Date: 20080715
  Receipt Date: 20080704
  Transmission Date: 20090109
  Serious: Yes (Hospitalization, Other)
  Sender: FDA-Public Use
  Company Number: AT-JNJFOC-20080200911

PATIENT
  Sex: Female
  Weight: 80 kg

DRUGS (13)
  1. INFLIXIMAB, RECOMBINANT [Suspect]
     Route: 042
  2. INFLIXIMAB, RECOMBINANT [Suspect]
     Route: 042
  3. INFLIXIMAB, RECOMBINANT [Suspect]
     Indication: CROHN'S DISEASE
     Route: 042
  4. SALAZOPYRIN [Concomitant]
     Indication: CROHN'S DISEASE
  5. DURAGESIC-100 [Concomitant]
     Indication: BACK PAIN
  6. FOLSAN [Concomitant]
     Indication: ANAEMIA
  7. ISONIAZID [Concomitant]
     Indication: ANTIBIOTIC PROPHYLAXIS
  8. SINTROM [Concomitant]
     Indication: THROMBOSIS PROPHYLAXIS
  9. GABAPENTIN [Concomitant]
     Indication: BACK PAIN
  10. ESCITALOPRAM [Concomitant]
     Indication: DEPRESSION
  11. NEXIUM [Concomitant]
     Indication: PROPHYLAXIS
  12. DOMINAL FORTE [Concomitant]
     Indication: DRUG USE FOR UNKNOWN INDICATION
  13. PURINETHOL [Concomitant]

REACTIONS (3)
  - ABSCESS [None]
  - ANAL ABSCESS [None]
  - FISTULA [None]
